FAERS Safety Report 17328444 (Version 2)
Quarter: 2020Q1

REPORT INFORMATION
  Report Type: Spontaneous
  Country: GB (occurrence: GB)
  Receive Date: 20200127
  Receipt Date: 20200131
  Transmission Date: 20200409
  Serious: Yes (Hospitalization, Disabling, Other)
  Sender: FDA-Public Use
  Company Number: GB-MYLANLABS-2020M1009069

PATIENT
  Age: 9 Decade
  Sex: Female

DRUGS (9)
  1. NAPROXEN. [Suspect]
     Active Substance: NAPROXEN
     Dosage: 250 MILLIGRAM, QD (250 MILLIGRAM, 1 TABLET AT NIGHT)
     Route: 048
  2. NAPROXEN. [Suspect]
     Active Substance: NAPROXEN
     Indication: ARTHRITIS
     Dosage: 250 MILLIGRAM, QOD (250 MILLIGRAM, BID)
     Route: 048
     Dates: start: 2015
  3. NAPROXEN. [Suspect]
     Active Substance: NAPROXEN
     Dosage: 250 MILLIGRAM, Q28D (250 MILLIGRAM, 1 TABLET FOUR TIMES A WEEK)
     Route: 048
  4. CO-DYDRAMOL [Concomitant]
     Active Substance: ACETAMINOPHEN\DIHYDROCODEINE
     Indication: ARTHRALGIA
     Dosage: UNK; ONCE IN THE MORNING
     Route: 065
  5. NAPROXEN. [Suspect]
     Active Substance: NAPROXEN
     Dosage: 250 MILLIGRAM, Q3W (250 MILLIGRAM, 1 TABLET THREE TIMES A WEEK)
     Route: 048
  6. NAPROXEN. [Suspect]
     Active Substance: NAPROXEN
     Dosage: 250 MILLIGRAM, QOD
  7. PARACETAMOL [Concomitant]
     Active Substance: ACETAMINOPHEN
     Indication: ARTHRITIS
     Dosage: UNK;DURING DAY TIME AFTER LUNCH
  8. NAPROXEN. [Suspect]
     Active Substance: NAPROXEN
     Indication: ARTHRALGIA
     Dosage: 250 MILLIGRAM (250 MILLIGRAM, 1 TABLET EVERY OTHER DAY)
     Route: 048
     Dates: start: 2019
  9. CO-DYDRAMOL [Concomitant]
     Active Substance: ACETAMINOPHEN\DIHYDROCODEINE
     Indication: INSOMNIA

REACTIONS (17)
  - Blood pressure increased [Not Recovered/Not Resolved]
  - Cough [Recovering/Resolving]
  - Lung disorder [Unknown]
  - Intentional product use issue [Unknown]
  - Limb mass [Unknown]
  - Pain [Unknown]
  - Intentional product misuse [Unknown]
  - Dysphagia [Unknown]
  - Malaise [Unknown]
  - Treatment noncompliance [Unknown]
  - Choking [Recovered/Resolved]
  - Dysphonia [Unknown]
  - Alopecia [Unknown]
  - Decreased appetite [Unknown]
  - Hypokinesia [Unknown]
  - Chest discomfort [Unknown]
  - Vomiting [Recovered/Resolved]
